FAERS Safety Report 8788205 (Version 1)
Quarter: 2012Q4

REPORT INFORMATION
  Report Type: 
  Country: US (occurrence: US)
  Receive Date: 20120914
  Receipt Date: 20120914
  Transmission Date: 20130627
  Serious: No
  Sender: FDA-Public Use
  Company Number: US-VERTEX PHARMACEUTICAL INC.-AE-2012-011541

PATIENT
  Sex: Male
  Weight: 88.18 kg

DRUGS (1)
  1. INCIVEK [Suspect]
     Indication: HEPATITIS C
     Route: 048

REACTIONS (16)
  - Blood pressure decreased [Unknown]
  - Headache [Unknown]
  - Emotional disorder [Unknown]
  - Somnolence [Unknown]
  - Irritability [Unknown]
  - Decreased appetite [Unknown]
  - Weight decreased [Unknown]
  - Bowel movement irregularity [Unknown]
  - Faeces hard [Unknown]
  - Constipation [Unknown]
  - Asthenia [Unknown]
  - Fatigue [Unknown]
  - Rash [Unknown]
  - Anal pruritus [Unknown]
  - Proctalgia [Unknown]
  - Viral load increased [Unknown]
